FAERS Safety Report 18229620 (Version 1)
Quarter: 2020Q3

REPORT INFORMATION
  Report Type: Spontaneous
  Country: BR (occurrence: BR)
  Receive Date: 20200903
  Receipt Date: 20200903
  Transmission Date: 20201103
  Serious: Yes (Other)
  Sender: FDA-Public Use
  Company Number: BR-ALLERGAN-2033501US

PATIENT
  Sex: Male

DRUGS (3)
  1. COSOPT [Concomitant]
     Active Substance: DORZOLAMIDE HYDROCHLORIDE\TIMOLOL MALEATE
  2. AZOPT [Concomitant]
     Active Substance: BRINZOLAMIDE
  3. COMBIGAN [Suspect]
     Active Substance: BRIMONIDINE TARTRATE\TIMOLOL MALEATE
     Indication: DIABETIC RETINOPATHY
     Dosage: UNK

REACTIONS (4)
  - Off label use [Unknown]
  - Lacrimation increased [Unknown]
  - Conjunctival hyperaemia [Unknown]
  - Blindness [Unknown]
